FAERS Safety Report 14650037 (Version 1)
Quarter: 2018Q1

REPORT INFORMATION
  Report Type: Spontaneous
  Country: GR (occurrence: GR)
  Receive Date: 20180316
  Receipt Date: 20180316
  Transmission Date: 20180509
  Serious: Yes (Other)
  Sender: FDA-Public Use
  Company Number: GR-INCYTE CORPORATION-2018IN002512

PATIENT

DRUGS (4)
  1. JAKAVI [Suspect]
     Active Substance: RUXOLITINIB
     Indication: MYELOFIBROSIS
     Dosage: 2 DF, UNK (20 MG)
     Route: 065
     Dates: start: 201502
  2. JAKAVI [Suspect]
     Active Substance: RUXOLITINIB
     Dosage: 2 DF, UNK (10 MG)
     Route: 065
     Dates: start: 201510
  3. JAKAVI [Suspect]
     Active Substance: RUXOLITINIB
     Dosage: 2 DF, UNK (5 MG)
     Route: 065
     Dates: start: 201503
  4. JAKAVI [Suspect]
     Active Substance: RUXOLITINIB
     Dosage: 2 DF, UNK (20 MG)
     Route: 065
     Dates: start: 201608

REACTIONS (2)
  - Leukocytosis [Not Recovered/Not Resolved]
  - Acute myeloid leukaemia [Unknown]

NARRATIVE: CASE EVENT DATE: 201610
